FAERS Safety Report 9779557 (Version 1)
Quarter: 2013Q4

REPORT INFORMATION
  Report Type: Spontaneous
  Country: US (occurrence: US)
  Receive Date: 20131223
  Receipt Date: 20131223
  Transmission Date: 20140711
  Serious: Yes (Hospitalization)
  Sender: FDA-Public Use
  Company Number: US-PFIZER INC-2013364859

PATIENT
  Sex: Female

DRUGS (1)
  1. LOPID [Suspect]
     Dosage: UNK

REACTIONS (1)
  - Feeling abnormal [Unknown]
